FAERS Safety Report 7677130-4 (Version None)
Quarter: 2011Q3

REPORT INFORMATION
  Report Type: 
  Country: None (occurrence: None)
  Receive Date: 20110811
  Receipt Date: 20110805
  Transmission Date: 20111222
  Serious: Yes (Death, Other)
  Sender: FDA-Public Use
  Company Number: PHHY2011IT71584

PATIENT

DRUGS (1)
  1. METHERGINE [Suspect]
     Dosage: 0.2 MG, UNK

REACTIONS (8)
  - AREFLEXIA [None]
  - DYSPNOEA [None]
  - DEATH [None]
  - MUSCLE CONTRACTIONS INVOLUNTARY [None]
  - CYANOSIS [None]
  - MYDRIASIS [None]
  - TACHYPNOEA [None]
  - DRUG ADMINISTRATION ERROR [None]
